FAERS Safety Report 20188610 (Version 3)
Quarter: 2022Q1

REPORT INFORMATION
  Report Type: Spontaneous
  Country: US (occurrence: None)
  Receive Date: 20211215
  Receipt Date: 20220202
  Transmission Date: 20220424
  Serious: Yes (Other)
  Sender: FDA-Public Use
  Company Number: 2021A859763

PATIENT
  Age: 616 Month
  Sex: Female
  Weight: 72.6 kg

DRUGS (1)
  1. SAPHNELO [Suspect]
     Active Substance: ANIFROLUMAB-FNIA
     Indication: Systemic lupus erythematosus
     Route: 041
     Dates: start: 20211015

REACTIONS (5)
  - Seizure [Unknown]
  - Generalised tonic-clonic seizure [Recovered/Resolved]
  - COVID-19 [Recovered/Resolved]
  - Systemic lupus erythematosus [Unknown]
  - Inappropriate schedule of product administration [Unknown]

NARRATIVE: CASE EVENT DATE: 20211101
